FAERS Safety Report 24142396 (Version 1)
Quarter: 2024Q3

REPORT INFORMATION
  Report Type: Spontaneous
  Country: US (occurrence: None)
  Receive Date: 20240726
  Receipt Date: 20240726
  Transmission Date: 20241017
  Serious: Yes (Death)
  Sender: Public
  Company Number: None

PATIENT
  Age: 60 Year
  Sex: Male
  Weight: 69 kg

DRUGS (1)
  1. MIRCERA [Suspect]
     Active Substance: METHOXY POLYETHYLENE GLYCOL-EPOETIN BETA
     Indication: Nephrogenic anaemia
     Dosage: ?75 UG EVERY 2 WEEKS INTRAVENOUS BOLUS
     Route: 040
     Dates: start: 20240716, end: 20240716

REACTIONS (3)
  - Unresponsive to stimuli [None]
  - Therapy cessation [None]
  - Dialysis related complication [None]

NARRATIVE: CASE EVENT DATE: 20240716
